FAERS Safety Report 20877473 (Version 2)
Quarter: 2022Q2

REPORT INFORMATION
  Report Type: Spontaneous
  Country: US (occurrence: US)
  Receive Date: 20220526
  Receipt Date: 20220527
  Transmission Date: 20220720
  Serious: Yes (Hospitalization)
  Sender: FDA-Public Use
  Company Number: US-BIOGEN-2022BI01125689

PATIENT
  Age: 39 Year
  Sex: Male

DRUGS (1)
  1. SPINRAZA [Suspect]
     Active Substance: NUSINERSEN
     Indication: Product used for unknown indication
     Route: 065

REACTIONS (6)
  - Fall [Recovered/Resolved]
  - Spinal compression fracture [Unknown]
  - Back pain [Unknown]
  - Coccydynia [Unknown]
  - Muscle spasms [Unknown]
  - Gait inability [Unknown]

NARRATIVE: CASE EVENT DATE: 20220501
